FAERS Safety Report 6901655-X (Version None)
Quarter: 2010Q3

REPORT INFORMATION
  Report Type: 
  Country: None (occurrence: None)
  Receive Date: 20100803
  Receipt Date: 20080224
  Transmission Date: 20110219
  Serious: No
  Sender: FDA-Public Use
  Company Number: US-PFIZER INC-2008018359

PATIENT
  Sex: Female
  Weight: 73.6 kg

DRUGS (2)
  1. LYRICA [Suspect]
     Indication: FIBROMYALGIA
     Dates: start: 20080221
  2. CARDURA [Concomitant]

REACTIONS (5)
  - ABDOMINAL PAIN UPPER [None]
  - FEELING DRUNK [None]
  - GAIT DISTURBANCE [None]
  - PALPITATIONS [None]
  - SOMNOLENCE [None]
